FAERS Safety Report 9298297 (Version 2)
Quarter: 2013Q2

REPORT INFORMATION
  Report Type: Report from Study
  Country: JP (occurrence: JP)
  Receive Date: 20130520
  Receipt Date: 20130520
  Transmission Date: 20140414
  Serious: Yes (Death)
  Sender: FDA-Public Use
  Company Number: JP-EISAI INC-E7389-02442-CLI-JP

PATIENT
  Age: 60 Year
  Sex: Male
  Weight: 60 kg

DRUGS (6)
  1. E7389 (BOLD) [Suspect]
     Indication: NON-SMALL CELL LUNG CANCER
     Dosage: UNKNOWN
     Route: 041
     Dates: start: 20120131, end: 2012
  2. E7389 (BOLD) [Suspect]
     Route: 041
     Dates: start: 20120514, end: 20120521
  3. U-PAN [Suspect]
     Indication: ALCOHOLISM
     Route: 048
     Dates: start: 2004
  4. HIRNAMIN [Suspect]
     Indication: ALCOHOLISM
     Route: 048
     Dates: start: 2004
  5. MEDEPOLIN [Suspect]
     Indication: ALCOHOLISM
     Route: 048
     Dates: start: 2004
  6. FLUNITRAZEPAM [Suspect]
     Indication: ALCOHOLISM
     Route: 048
     Dates: start: 2004

REACTIONS (4)
  - Cardiac failure [Fatal]
  - Aspartate aminotransferase increased [Recovering/Resolving]
  - Alanine aminotransferase increased [Recovering/Resolving]
  - Hypophosphataemia [Recovered/Resolved]
